FAERS Safety Report 4542511-4 (Version None)
Quarter: 2004Q4

REPORT INFORMATION
  Report Type: 
  Country: None (occurrence: None)
  Receive Date: 20041227
  Receipt Date: 20041214
  Transmission Date: 20050328
  Serious: Yes (Other)
  Sender: FDA-Public Use
  Company Number: 2004112941

PATIENT
  Age: 45 Year
  Sex: Male
  Weight: 31.7518 kg

DRUGS (2)
  1. CYTOTEC [Suspect]
     Indication: ILEAL ULCER
     Dosage: 800 MG (200 MG, QID), ORAL
     Route: 048
     Dates: start: 20030101
  2. SUCRALFATE [Concomitant]

REACTIONS (2)
  - BLOOD URINE PRESENT [None]
  - SEMEN ABNORMAL [None]
